FAERS Safety Report 4261865-X (Version None)
Quarter: 2004Q1

REPORT INFORMATION
  Report Type: 
  Country: None (occurrence: None)
  Receive Date: 20040102
  Receipt Date: 20031118
  Transmission Date: 20041129
  Serious: Yes (Hospitalization)
  Sender: FDA-Public Use
  Company Number: PHBS2003JP12992

PATIENT
  Age: 48 Year
  Sex: Male

DRUGS (1)
  1. VOLTAREN [Suspect]
     Indication: ANTIPYRESIS
     Dosage: 25 MG/DAY
     Route: 048
     Dates: start: 20020417, end: 20020417

REACTIONS (6)
  - BLOOD CREATININE INCREASED [None]
  - BLOOD UREA INCREASED [None]
  - OCULOMUCOCUTANEOUS SYNDROME [None]
  - RASH GENERALISED [None]
  - RENAL FAILURE ACUTE [None]
  - RHABDOMYOLYSIS [None]
